FAERS Safety Report 24415150 (Version 1)
Quarter: 2024Q4

REPORT INFORMATION
  Report Type: Spontaneous
  Country: GB (occurrence: GB)
  Receive Date: 20241009
  Receipt Date: 20241009
  Transmission Date: 20250115
  Serious: Yes (Other)
  Sender: HETERO
  Company Number: GB-AMAROX PHARMA-AMR2024GB03507

PATIENT
  Age: 7 Decade
  Sex: Male

DRUGS (10)
  1. LINEZOLID [Suspect]
     Active Substance: LINEZOLID
     Indication: Skin bacterial infection
     Dosage: 600 MILLIGRAM,QD (REDUCED)
     Route: 065
  2. LINEZOLID [Suspect]
     Active Substance: LINEZOLID
     Indication: Abscess bacterial
     Dosage: 600 MILLIGRAM, BID
     Route: 065
  3. LINEZOLID [Suspect]
     Active Substance: LINEZOLID
     Indication: Mycobacterium chelonae infection
  4. TIGECYCLINE [Suspect]
     Active Substance: TIGECYCLINE
     Indication: Abscess bacterial
     Dosage: 100 MILLIGRAM, QD
     Route: 042
  5. TIGECYCLINE [Suspect]
     Active Substance: TIGECYCLINE
     Indication: Skin bacterial infection
     Dosage: 50 MILLIGRAM, QD (REDUCED)
     Route: 042
  6. TIGECYCLINE [Suspect]
     Active Substance: TIGECYCLINE
     Indication: Mycobacterium chelonae infection
  7. TACROLIMUS [Concomitant]
     Active Substance: TACROLIMUS
     Indication: Immunosuppressant drug therapy
     Dosage: UNK
     Route: 065
  8. TACROLIMUS [Concomitant]
     Active Substance: TACROLIMUS
     Dosage: 0.5 MILLIGRAM, QID (ADJUSTED)
     Route: 065
  9. TACROLIMUS [Concomitant]
     Active Substance: TACROLIMUS
     Dosage: 0.5 MILLIGRAM, BID (INCREASED)
     Route: 065
  10. PREDNISOLONE [Concomitant]
     Active Substance: PREDNISOLONE
     Indication: Immunosuppressant drug therapy
     Dosage: 2 MILLIGRAMS (LOW-DOSE)
     Route: 065

REACTIONS (6)
  - Renal impairment [Recovered/Resolved]
  - Vomiting [Unknown]
  - Weight decreased [Unknown]
  - Decreased appetite [Unknown]
  - Nausea [Unknown]
  - Anaemia [Unknown]
